FAERS Safety Report 4427154-5 (Version None)
Quarter: 2004Q3

REPORT INFORMATION
  Report Type: 
  Country: None (occurrence: None)
  Receive Date: 20040726
  Receipt Date: 20040519
  Transmission Date: 20050211
  Serious: No
  Sender: FDA-Public Use
  Company Number: USA040465953

PATIENT
  Age: 72 Year
  Sex: Female
  Weight: 54 kg

DRUGS (9)
  1. FORTEO [Suspect]
     Indication: OSTEOPOROSIS
     Dosage: 20 UG DAY
     Dates: start: 20040423, end: 20040427
  2. REMICADE [Concomitant]
  3. LORTAB [Concomitant]
  4. POTASSIUM [Concomitant]
  5. CALCIUM [Concomitant]
  6. FOLIC ACID [Concomitant]
  7. COUMADIN [Concomitant]
  8. METOPROLOL [Concomitant]
  9. METHOTREXATE [Concomitant]

REACTIONS (14)
  - ABDOMINAL DISCOMFORT [None]
  - ABDOMINAL PAIN UPPER [None]
  - ANAL DISCOMFORT [None]
  - ARTHRALGIA [None]
  - ASTHENIA [None]
  - CHEST DISCOMFORT [None]
  - CHEST PAIN [None]
  - CHOKING [None]
  - CONSTIPATION [None]
  - FEELING ABNORMAL [None]
  - FLATULENCE [None]
  - NAUSEA [None]
  - SYNOVITIS [None]
  - VOMITING [None]
